FAERS Safety Report 5123075-3 (Version None)
Quarter: 2006Q4

REPORT INFORMATION
  Report Type: 
  Country: None (occurrence: None)
  Receive Date: 20061004
  Receipt Date: 20061004
  Transmission Date: 20070319
  Serious: Yes (Other)
  Sender: FDA-Public Use
  Company Number: None

PATIENT
  Sex: Male

DRUGS (2)
  1. QUETIAPINE [Suspect]
     Indication: MANIA
     Dosage: 1000 MG BEDTIME PO
     Route: 048
     Dates: start: 20060405
  2. ZIPRASIDONE HCL [Suspect]
     Indication: AGITATION
     Dosage: 80 MG BEDTIME PO
     Route: 048
     Dates: start: 20060808, end: 20060815

REACTIONS (1)
  - GAZE PALSY [None]
